FAERS Safety Report 8368319-X (Version None)
Quarter: 2012Q2

REPORT INFORMATION
  Report Type: 
  Country: None (occurrence: None)
  Receive Date: 20120517
  Receipt Date: 20120514
  Transmission Date: 20120825
  Serious: Yes (Other)
  Sender: FDA-Public Use
  Company Number: CHPA2012US010420

PATIENT
  Age: 77 Year
  Sex: Female

DRUGS (2)
  1. PREVACID 24 HR [Suspect]
     Indication: LACTOSE INTOLERANCE
     Dosage: 15 MG, QD
     Route: 048
     Dates: start: 20090101
  2. PREVACID 24 HR [Suspect]
     Dosage: 15-30MG, QD
     Route: 048

REACTIONS (13)
  - LIP PRURITUS [None]
  - DISEASE RECURRENCE [None]
  - WRONG TECHNIQUE IN DRUG USAGE PROCESS [None]
  - OFF LABEL USE [None]
  - INCORRECT DRUG ADMINISTRATION DURATION [None]
  - OVERDOSE [None]
  - LIP SWELLING [None]
  - BURNING SENSATION [None]
  - URTICARIA [None]
  - BRONCHITIS [None]
  - HERPES ZOSTER [None]
  - EYE PRURITUS [None]
  - EYE SWELLING [None]
